FAERS Safety Report 4554517-X (Version None)
Quarter: 2005Q1

REPORT INFORMATION
  Report Type: 
  Country: None (occurrence: None)
  Receive Date: 20050114
  Receipt Date: 20040817
  Transmission Date: 20050727
  Serious: Yes (Hospitalization)
  Sender: FDA-Public Use
  Company Number: GXKR2004US00582

PATIENT
  Age: 84 Year
  Sex: Male

DRUGS (13)
  1. METFORMIN (NGX) (METFORMIN) UNKNOWN [Suspect]
     Dosage: ORAL
     Route: 048
  2. GLIPIZIDE [Concomitant]
  3. FLUTICASONE PROPIONATE [Concomitant]
  4. IPRATROPIUM BROMIDE [Concomitant]
  5. PREDNISOLONE [Concomitant]
  6. PIOGLITAZONE HCL [Concomitant]
  7. ASPIRIN [Concomitant]
  8. BETOPTIC (BETAXOLOL HYDROCHLORIDE) EYE DROPS [Concomitant]
  9. DICLOFENAC (DICLOFENAC) EYE DROPS [Concomitant]
  10. DORZOLAMIDE (DORZOLAMIDE) EYE DROPS [Concomitant]
  11. INSULIN [Concomitant]
  12. FUROSEMIDE [Concomitant]
  13. POTASSIUM CHLORIDE [Concomitant]

REACTIONS (10)
  - BLOOD GLUCOSE INCREASED [None]
  - BLOOD LACTIC ACID INCREASED [None]
  - BLOOD PRESSURE SYSTOLIC INCREASED [None]
  - BLOOD UREA INCREASED [None]
  - CONFUSIONAL STATE [None]
  - DISORIENTATION [None]
  - HEART RATE INCREASED [None]
  - HYPERVENTILATION [None]
  - RESPIRATORY ALKALOSIS [None]
  - RESPIRATORY RATE INCREASED [None]
